FAERS Safety Report 5086298-8 (Version None)
Quarter: 2006Q3

REPORT INFORMATION
  Report Type: 
  Country: None (occurrence: None)
  Receive Date: 20060703
  Receipt Date: 20051123
  Transmission Date: 20061208
  Serious: No
  Sender: FDA-Public Use
  Company Number: 2005S1011738

PATIENT
  Age: 56 Year
  Sex: Male

DRUGS (4)
  1. CLOZAPINE [Suspect]
     Indication: SCHIZOPHRENIA, DISORGANISED TYPE
     Dosage: 600 MG; HS; PO
     Route: 048
     Dates: start: 20040101
  2. VITAMIN NOS [Concomitant]
  3. ASCORBIC ACID [Concomitant]
  4. CALCIUM GLUCONATE [Concomitant]

REACTIONS (1)
  - GRANULOCYTOPENIA [None]
